FAERS Safety Report 4943572-0 (Version None)
Quarter: 2006Q1

REPORT INFORMATION
  Report Type: 
  Country: None (occurrence: None)
  Receive Date: 20060310
  Receipt Date: 20060223
  Transmission Date: 20060701
  Serious: Yes (Other)
  Sender: FDA-Public Use
  Company Number: B0408274A

PATIENT
  Age: 53 Year
  Sex: Female
  Weight: 50.3946 kg

DRUGS (5)
  1. PAXIL [Suspect]
     Indication: DEPRESSION
     Dosage: 10 MG/ PER DAY/ ORAL
     Route: 048
     Dates: start: 20060105, end: 20060107
  2. LANSOPRAZOLE [Concomitant]
  3. MONTELUKAST SODIUM [Concomitant]
  4. SIMVASTATIN [Suspect]
  5. MOSAPRIDE CITRATE [Concomitant]

REACTIONS (6)
  - ANXIETY [None]
  - DYSPEPSIA [None]
  - HYPOAESTHESIA [None]
  - NAUSEA [None]
  - PANIC DISORDER [None]
  - SEROTONIN SYNDROME [None]
